FAERS Safety Report 9283802 (Version 2)
Quarter: 2013Q2

REPORT INFORMATION
  Report Type: Spontaneous
  Country: PE (occurrence: PE)
  Receive Date: 20130510
  Receipt Date: 20130529
  Transmission Date: 20140414
  Serious: No
  Sender: FDA-Public Use
  Company Number: PE-ELI_LILLY_AND_COMPANY-PE201305001849

PATIENT
  Age: 81 Year
  Sex: Female

DRUGS (2)
  1. EVISTA [Suspect]
     Indication: OSTEOARTHRITIS
     Dosage: 60 MG, QD
     Dates: start: 20090713
  2. DAFLON                             /00426001/ [Concomitant]
     Indication: VARICOSE VEIN
     Dosage: 500 MG, UNKNOWN

REACTIONS (2)
  - Hot flush [Recovered/Resolved]
  - Off label use [Unknown]
